FAERS Safety Report 21561735 (Version 2)
Quarter: 2022Q4

REPORT INFORMATION
  Report Type: Spontaneous
  Country: US (occurrence: US)
  Receive Date: 20221107
  Receipt Date: 20221212
  Transmission Date: 20230113
  Serious: No
  Sender: FDA-Public Use
  Company Number: US-PFIZER INC-PV202200097793

PATIENT
  Age: 72 Year
  Sex: Male

DRUGS (1)
  1. RUXIENCE [Suspect]
     Active Substance: RITUXIMAB-PVVR
     Dosage: 700 MG, CYCLIC (Q21D X 4 CYCLES)

REACTIONS (1)
  - Weight decreased [Unknown]
